FAERS Safety Report 24555747 (Version 1)
Quarter: 2024Q4

REPORT INFORMATION
  Report Type: Spontaneous
  Country: AU (occurrence: AU)
  Receive Date: 20241028
  Receipt Date: 20241028
  Transmission Date: 20250115
  Serious: Yes (Death)
  Sender: ELI LILLY AND COMPANY
  Company Number: AU-ELI_LILLY_AND_COMPANY-AU202410015628

PATIENT
  Age: 59 Year

DRUGS (1)
  1. ABEMACICLIB [Suspect]
     Active Substance: ABEMACICLIB
     Indication: Product used for unknown indication
     Dosage: UNK UNK, UNKNOWN
     Route: 065
     Dates: start: 20240627, end: 20240709

REACTIONS (3)
  - Pneumocystis jirovecii pneumonia [Fatal]
  - Pulmonary toxicity [Fatal]
  - Pneumonitis [Fatal]

NARRATIVE: CASE EVENT DATE: 20240710
